FAERS Safety Report 4692234-6 (Version None)
Quarter: 2005Q2

REPORT INFORMATION
  Report Type: 
  Country: None (occurrence: None)
  Receive Date: 20050614
  Receipt Date: 20050530
  Transmission Date: 20051028
  Serious: Yes (Hospitalization)
  Sender: FDA-Public Use
  Company Number: TNZFR200500039

PATIENT
  Age: 75 Year
  Sex: Female
  Weight: 85 kg

DRUGS (6)
  1. INNOHEP [Suspect]
     Dosage: 4500 IU (4500 IU, ONCE DAILY), SUBCUTANEOUS
     Route: 058
     Dates: start: 20040701, end: 20040704
  2. ARIXTRA [Suspect]
     Dosage: 1 DOSAGE FORMS, SUBCUTANEOUS
     Route: 058
     Dates: start: 20040624, end: 20040630
  3. APROVEL (IRBESARTAN) [Concomitant]
  4. VIOXX [Concomitant]
  5. OMEPRAZOLE [Concomitant]
  6. FERROUS FUMARATE [Concomitant]

REACTIONS (2)
  - DEEP VEIN THROMBOSIS [None]
  - THROMBOCYTHAEMIA [None]
